FAERS Safety Report 11195455 (Version 2)
Quarter: 2015Q4

REPORT INFORMATION
  Report Type: Spontaneous
  Country: GB (occurrence: GB)
  Receive Date: 20150617
  Receipt Date: 20151105
  Transmission Date: 20160304
  Serious: Yes (Other)
  Sender: FDA-Public Use
  Company Number: GB-WATSON-2015-11090

PATIENT
  Age: 63 Year
  Sex: Female
  Weight: 68.3 kg

DRUGS (2)
  1. DOSULEPIN HYDROCHLORIDE [Concomitant]
     Active Substance: DOTHIEPIN HYDROCHLORIDE
     Indication: PRODUCT USED FOR UNKNOWN INDICATION
     Dosage: UNK
     Route: 065
  2. METRONIDAZOLE. [Suspect]
     Active Substance: METRONIDAZOLE
     Indication: DENTAL OPERATION
     Dosage: 1 DF, TID
     Route: 048
     Dates: start: 20150512, end: 20150517

REACTIONS (5)
  - Peripheral swelling [Recovered/Resolved]
  - Malaise [Not Recovered/Not Resolved]
  - Lymphadenopathy [Unknown]
  - Pruritus [Not Recovered/Not Resolved]
  - Rash generalised [Not Recovered/Not Resolved]

NARRATIVE: CASE EVENT DATE: 20150512
